FAERS Safety Report 11165047 (Version 1)
Quarter: 2015Q2

REPORT INFORMATION
  Report Type: Spontaneous
  Country: US (occurrence: None)
  Receive Date: 20150603
  Receipt Date: 20150603
  Transmission Date: 20150821
  Serious: Yes (Disabling, Other)
  Sender: FDA-Public Use
  Company Number: None

PATIENT
  Age: 52 Year

DRUGS (2)
  1. HYDROCODONE/ACETAMINOPHEN [Suspect]
     Active Substance: ACETAMINOPHEN\HYDROCODONE
     Indication: BACK PAIN
     Dosage: 1/2
     Route: 048
  2. PARAFON [Concomitant]

REACTIONS (6)
  - Musculoskeletal stiffness [None]
  - Drug effect decreased [None]
  - Withdrawal syndrome [None]
  - Hyperhidrosis [None]
  - Malaise [None]
  - Fatigue [None]
